FAERS Safety Report 5551378-7 (Version None)
Quarter: 2007Q4

REPORT INFORMATION
  Report Type: 
  Country: None (occurrence: None)
  Receive Date: 20071128
  Receipt Date: 20070622
  Transmission Date: 20080405
  Serious: Yes (Hospitalization)
  Sender: FDA-Public Use
  Company Number: 2007033563

PATIENT
  Age: 69 Year
  Sex: Female
  Weight: 49.4 kg

DRUGS (2)
  1. LIPITOR [Suspect]
     Indication: HYPERLIPIDAEMIA
     Dosage: 20 MG (1 D)
     Dates: start: 20050923
  2. FOSAMAX [Concomitant]

REACTIONS (1)
  - AMNESIA [None]
